FAERS Safety Report 9798205 (Version 1)
Quarter: 2014Q1

REPORT INFORMATION
  Report Type: Spontaneous
  Country: US (occurrence: None)
  Receive Date: 20140103
  Receipt Date: 20140103
  Transmission Date: 20141002
  Serious: Yes (Life-Threatening, Hospitalization, Other)
  Sender: FDA-Public Use
  Company Number: None

PATIENT
  Age: 38 Year
  Sex: Female
  Weight: 95.26 kg

DRUGS (1)
  1. TRI-PREVIFEM [Suspect]
     Indication: ORAL CONTRACEPTION
     Dosage: 1 PILL
     Route: 048
     Dates: start: 20130123, end: 20130502

REACTIONS (3)
  - Deep vein thrombosis [None]
  - Pulmonary embolism [None]
  - Product substitution issue [None]
